FAERS Safety Report 5630505-7 (Version None)
Quarter: 2008Q1

REPORT INFORMATION
  Report Type: 
  Country: None (occurrence: None)
  Receive Date: 20080219
  Receipt Date: 20080206
  Transmission Date: 20080703
  Serious: Yes (Congenital Anomaly)
  Sender: FDA-Public Use
  Company Number: B0508353A

PATIENT
  Age: 0 Year
  Sex: Male

DRUGS (6)
  1. COMBIVIR [Suspect]
     Indication: HIV INFECTION
  2. ZIDOVUDINE [Suspect]
     Dosage: 500MG PER DAY
     Dates: start: 20041201, end: 20050308
  3. DARUNAVIR [Suspect]
     Dates: start: 20041117, end: 20050308
  4. VIRACEPT [Suspect]
     Dosage: 100MG PER DAY
     Dates: start: 20041117, end: 20050308
  5. VIREAD [Suspect]
     Dosage: 300MG PER DAY
     Dates: start: 20041201, end: 20050308
  6. LEXIVA [Suspect]
     Dosage: 2600MG PER DAY

REACTIONS (2)
  - DRUG EXPOSURE DURING PREGNANCY [None]
  - MICROGNATHIA [None]
